FAERS Safety Report 10805413 (Version 1)
Quarter: 2015Q1

REPORT INFORMATION
  Report Type: Report from Study
  Country: US (occurrence: US)
  Receive Date: 20150217
  Receipt Date: 20150217
  Transmission Date: 20150721
  Serious: No
  Sender: FDA-Public Use
  Company Number: US-ABBVIE-14K-163-1239103-00

PATIENT
  Age: 62 Year
  Sex: Male

DRUGS (11)
  1. GENERLAC [Concomitant]
     Active Substance: LACTULOSE
     Indication: BOWEL MOVEMENT IRREGULARITY
  2. XIFAXAN [Concomitant]
     Active Substance: RIFAXIMIN
     Indication: PROPHYLAXIS
  3. GENERLAC [Concomitant]
     Active Substance: LACTULOSE
     Indication: LIVER DISORDER
     Dosage: ONE TSBP
  4. FUROSEMIDE. [Concomitant]
     Active Substance: FUROSEMIDE
     Indication: FLUID RETENTION
  5. SPIRONOLACTONE. [Concomitant]
     Active Substance: SPIRONOLACTONE
     Indication: FLUID RETENTION
  6. XIFAXAN [Concomitant]
     Active Substance: RIFAXIMIN
     Indication: BOWEL MOVEMENT IRREGULARITY
  7. XIFAXAN [Concomitant]
     Active Substance: RIFAXIMIN
     Indication: LIVER DISORDER
  8. HUMIRA [Suspect]
     Active Substance: ADALIMUMAB
     Indication: CROHN^S DISEASE
     Dates: start: 20140324
  9. HYDROCHLOROTHIAZIDE. [Concomitant]
     Active Substance: HYDROCHLOROTHIAZIDE
     Indication: HYPERTENSION
  10. PANTOPRAZOLE [Concomitant]
     Active Substance: PANTOPRAZOLE SODIUM
     Indication: GASTROOESOPHAGEAL REFLUX DISEASE
  11. GENERLAC [Concomitant]
     Active Substance: LACTULOSE
     Indication: PROPHYLAXIS

REACTIONS (3)
  - Cough [Not Recovered/Not Resolved]
  - Sputum discoloured [Not Recovered/Not Resolved]
  - Productive cough [Not Recovered/Not Resolved]

NARRATIVE: CASE EVENT DATE: 201405
